FAERS Safety Report 8450585-3 (Version None)
Quarter: 2012Q2

REPORT INFORMATION
  Report Type: 
  Country: None (occurrence: None)
  Receive Date: 20120620
  Receipt Date: 20120614
  Transmission Date: 20120825
  Serious: Yes (Other)
  Sender: FDA-Public Use
  Company Number: US-PFIZER INC-2012144830

PATIENT
  Sex: Female

DRUGS (3)
  1. RAMIPRIL [Suspect]
     Dosage: UNK
  2. RAMIPRIL [Suspect]
     Dosage: UNK
  3. ALTACE [Suspect]
     Dosage: UNK

REACTIONS (2)
  - HEART RATE IRREGULAR [None]
  - FATIGUE [None]
